FAERS Safety Report 21881572 (Version 1)
Quarter: 2023Q1

REPORT INFORMATION
  Report Type: Report from Study
  Country: BR (occurrence: BR)
  Receive Date: 20230119
  Receipt Date: 20230119
  Transmission Date: 20230417
  Serious: Yes (Other)
  Sender: FDA-Public Use
  Company Number: BR-CELLTRION INC.-2023BR000886

PATIENT

DRUGS (3)
  1. INFLIXIMAB [Suspect]
     Active Substance: INFLIXIMAB
     Indication: Product used for unknown indication
     Route: 042
  2. RIFAMPIN [Concomitant]
     Active Substance: RIFAMPIN
  3. ISONIAZID [Concomitant]
     Active Substance: ISONIAZID

REACTIONS (2)
  - Tuberculosis [Unknown]
  - Intentional dose omission [Unknown]
